FAERS Safety Report 7442589-4 (Version None)
Quarter: 2011Q2

REPORT INFORMATION
  Report Type: 
  Country: None (occurrence: None)
  Receive Date: 20110426
  Receipt Date: 20110426
  Transmission Date: 20111010
  Serious: Yes (Hospitalization)
  Sender: FDA-Public Use
  Company Number: None

PATIENT
  Sex: Female
  Weight: 43 kg

DRUGS (2)
  1. METHOTREXATE [Suspect]
     Dosage: 45 MG
     Dates: end: 20110414
  2. ONCASPAR [Suspect]
     Dosage: 3450 IU
     Dates: end: 20110307

REACTIONS (13)
  - NEUROPATHY PERIPHERAL [None]
  - DIZZINESS [None]
  - DYSMENORRHOEA [None]
  - ACTIVATED PARTIAL THROMBOPLASTIN TIME PROLONGED [None]
  - HYPOAESTHESIA [None]
  - PROCEDURAL HEADACHE [None]
  - MUSCULAR WEAKNESS [None]
  - BLOOD FIBRINOGEN INCREASED [None]
  - ANTINUCLEAR ANTIBODY POSITIVE [None]
  - VOMITING [None]
  - ASTHENIA [None]
  - PERONEAL NERVE PALSY [None]
  - CARDIOLIPIN ANTIBODY POSITIVE [None]
